FAERS Safety Report 23263392 (Version 1)
Quarter: 2023Q4

REPORT INFORMATION
  Report Type: Spontaneous
  Country: US (occurrence: None)
  Receive Date: 20231204
  Receipt Date: 20231204
  Transmission Date: 20240110
  Serious: No
  Sender: FDA-Public Use
  Company Number: None

PATIENT
  Age: 2 Week
  Sex: Female
  Weight: 3.15 kg

DRUGS (1)
  1. NIRSEVIMAB [Suspect]
     Active Substance: NIRSEVIMAB
     Dosage: 50 MG ONCE INTRAMUSCULAR?
     Route: 030

REACTIONS (2)
  - Incorrect dose administered [None]
  - Inappropriate schedule of product administration [None]

NARRATIVE: CASE EVENT DATE: 20231204
